FAERS Safety Report 7376388-9 (Version None)
Quarter: 2011Q1

REPORT INFORMATION
  Report Type: 
  Country: None (occurrence: None)
  Receive Date: 20110316
  Receipt Date: 20110207
  Transmission Date: 20110831
  Serious: Yes (Hospitalization, Other)
  Sender: FDA-Public Use
  Company Number: 2128643-2011-00003

PATIENT
  Age: 21 Year
  Sex: Male

DRUGS (2)
  1. ALCOHOL SWABS AND PADS [Suspect]
     Indication: BLOOD GLUCOSE
     Dosage: 4X/DAY
  2. ALCOHOL SWABS AND PADS [Suspect]
     Indication: LABORATORY TEST
     Dosage: 4X/DAY

REACTIONS (6)
  - NAUSEA [None]
  - ABDOMINAL DISCOMFORT [None]
  - VOMITING [None]
  - DIARRHOEA [None]
  - INFECTION [None]
  - TRANSMISSION OF AN INFECTIOUS AGENT VIA A MEDICINAL PRODUCT [None]
